FAERS Safety Report 7180466-7 (Version None)
Quarter: 2010Q4

REPORT INFORMATION
  Report Type: 
  Country: None (occurrence: None)
  Receive Date: 20101221
  Receipt Date: 20101216
  Transmission Date: 20110411
  Serious: Yes (Other)
  Sender: FDA-Public Use
  Company Number: BR-ABBOTT-10P-020-0654076-00

PATIENT
  Sex: Female
  Weight: 48 kg

DRUGS (8)
  1. HUMIRA [Suspect]
     Indication: RHEUMATOID ARTHRITIS
     Route: 058
     Dates: start: 20100413, end: 20100801
  2. PREDNISONE [Suspect]
     Indication: RHEUMATOID ARTHRITIS
     Route: 048
     Dates: start: 19990101
  3. CALCIUM [Concomitant]
     Indication: OSTEOPOROSIS
     Route: 048
     Dates: start: 20090101
  4. VITAMIN D [Concomitant]
     Indication: OSTEOPOROSIS
     Dosage: 10 DROPS PER WEEK
     Route: 048
     Dates: start: 20100101
  5. VITAMIN D [Concomitant]
     Indication: SKIN DISORDER
  6. METHOTREXATE [Concomitant]
     Indication: RHEUMATOID ARTHRITIS
     Route: 048
     Dates: start: 19990101
  7. DIPYRONE [Concomitant]
     Indication: PAIN
     Dosage: 35 DROPS DAILY
     Route: 048
  8. CHOLECALCIFEROL [Concomitant]
     Indication: OSTEOPOROSIS
     Dates: start: 20100101

REACTIONS (10)
  - DIARRHOEA [None]
  - FINGER DEFORMITY [None]
  - FOOT DEFORMITY [None]
  - HAND DEFORMITY [None]
  - JOINT SWELLING [None]
  - LOCAL SWELLING [None]
  - PAIN IN EXTREMITY [None]
  - PRURITUS [None]
  - THYROID NEOPLASM [None]
  - WOUND [None]
